FAERS Safety Report 17229100 (Version 1)
Quarter: 2020Q1

REPORT INFORMATION
  Report Type: Spontaneous
  Country: US (occurrence: US)
  Receive Date: 20200102
  Receipt Date: 20200102
  Transmission Date: 20200409
  Serious: Yes (Disabling)
  Sender: FDA-Public Use
  Company Number: None

PATIENT
  Age: 35 Year
  Sex: Female
  Weight: 47.9 kg

DRUGS (1)
  1. CEPHALEXIN. [Suspect]
     Active Substance: CEPHALEXIN
     Indication: CELLULITIS
     Route: 048
     Dates: start: 20191106

REACTIONS (3)
  - Blood creatinine increased [None]
  - Dialysis [None]
  - Tubulointerstitial nephritis [None]

NARRATIVE: CASE EVENT DATE: 20191122
